FAERS Safety Report 23124470 (Version 2)
Quarter: 2023Q4

REPORT INFORMATION
  Report Type: Report from Study
  Country: RU (occurrence: RU)
  Receive Date: 20231030
  Receipt Date: 20231107
  Transmission Date: 20240109
  Serious: Yes (Other)
  Sender: FDA-Public Use
  Company Number: RU-002147023-NVSC2023RU230119

PATIENT
  Age: 43 Year
  Sex: Female

DRUGS (4)
  1. ALPELISIB [Suspect]
     Active Substance: ALPELISIB
     Indication: Breast cancer
     Dosage: 300 MG, QD
     Route: 048
     Dates: start: 202303, end: 20230926
  2. ALPELISIB [Suspect]
     Active Substance: ALPELISIB
     Indication: Hormone therapy
  3. FULVESTRANT [Concomitant]
     Active Substance: FULVESTRANT
     Indication: Hormone therapy
     Dosage: 500 UNK, QMO
     Route: 030
     Dates: start: 202303
  4. DENOSUMAB [Concomitant]
     Active Substance: DENOSUMAB
     Indication: Hormone therapy
     Dosage: 120 MG, 28D (ONCE EVERY 28 DAYS)
     Route: 065
     Dates: start: 202303

REACTIONS (6)
  - Alanine aminotransferase increased [Recovered/Resolved]
  - Aspartate aminotransferase increased [Recovered/Resolved]
  - Diarrhoea [Recovered/Resolved]
  - Asthenia [Recovered/Resolved]
  - Nausea [Recovered/Resolved]
  - Product use in unapproved indication [Unknown]

NARRATIVE: CASE EVENT DATE: 20230801
